FAERS Safety Report 10302237 (Version 1)
Quarter: 2014Q3

REPORT INFORMATION
  Report Type: Spontaneous
  Country: US (occurrence: None)
  Receive Date: 20140710
  Receipt Date: 20140710
  Transmission Date: 20150326
  Serious: Yes (Hospitalization)
  Sender: FDA-Public Use
  Company Number: None

PATIENT
  Age: 11 Year
  Sex: Female
  Weight: 59.8 kg

DRUGS (1)
  1. PEGINTRON [Suspect]
     Active Substance: PEGINTERFERON ALFA-2B
     Dosage: RECIEVED A 60 MCG PEGINTRON INJECTION ONCE A WEEK

REACTIONS (8)
  - Nausea [None]
  - Craniopharyngioma [None]
  - Headache [None]
  - Visual impairment [None]
  - Neoplasm progression [None]
  - Dizziness [None]
  - Vision blurred [None]
  - Photophobia [None]

NARRATIVE: CASE EVENT DATE: 20140625
